FAERS Safety Report 5713264-9 (Version None)
Quarter: 2008Q2

REPORT INFORMATION
  Report Type: 
  Country: None (occurrence: None)
  Receive Date: 20080422
  Receipt Date: 20080411
  Transmission Date: 20081010
  Serious: Yes (Other)
  Sender: FDA-Public Use
  Company Number: US-PFIZER INC-2008032657

PATIENT
  Sex: Female
  Weight: 91.363 kg

DRUGS (8)
  1. GLIPIZIDE [Suspect]
     Indication: DIABETES MELLITUS
  2. SYNTHROID [Concomitant]
  3. ZIAC [Concomitant]
  4. LANTUS [Concomitant]
  5. CLINDAMYCIN [Concomitant]
  6. LASIX [Concomitant]
  7. CLINORIL [Concomitant]
  8. ASTRIX [Concomitant]

REACTIONS (6)
  - ASPARTATE AMINOTRANSFERASE INCREASED [None]
  - BLOOD BILIRUBIN INCREASED [None]
  - CHOLESTASIS [None]
  - GALLBLADDER OEDEMA [None]
  - HEPATIC FAILURE [None]
  - LIVER INJURY [None]
